FAERS Safety Report 9536339 (Version 1)
Quarter: 2013Q2

REPORT INFORMATION
  Report Type: Spontaneous
  Country: US (occurrence: None)
  Receive Date: 20130517
  Receipt Date: 20130517
  Transmission Date: 20140414
  Serious: Yes (Other)
  Sender: FDA-Public Use
  Company Number: 1000044550

PATIENT
  Age: 50 Year
  Sex: Male

DRUGS (5)
  1. VIIBRYD [Suspect]
     Indication: DEPRESSION
     Route: 048
     Dates: start: 20130416
  2. COMBIVIR (ZIDOVUDINE W/LAMIVODINE) (ZIDOVUDINE) [Concomitant]
  3. VIRAMUNE (NEVIRAPINE) (NEVIRAPINE) [Concomitant]
  4. LISINOPRIL (LISINOPRIL) (LISINOPRIL) [Concomitant]
  5. AMBIEN (ZOLPIDEM TARTRATE) (ZOLPIDEM TARTRATE) [Concomitant]

REACTIONS (1)
  - Nausea [None]
